FAERS Safety Report 22207601 (Version 1)
Quarter: 2023Q2

REPORT INFORMATION
  Report Type: Spontaneous
  Country: JP (occurrence: JP)
  Receive Date: 20230413
  Receipt Date: 20230413
  Transmission Date: 20230721
  Serious: Yes (Death, Hospitalization, Other)
  Sender: FDA-Public Use
  Company Number: None

PATIENT
  Age: 78 Year
  Sex: Male
  Weight: 54.2 kg

DRUGS (10)
  1. INLYTA [Suspect]
     Active Substance: AXITINIB
     Indication: Metastatic renal cell carcinoma
     Dosage: 5 MG, 2X/DAY
     Route: 048
     Dates: start: 20220707, end: 20220824
  2. INLYTA [Suspect]
     Active Substance: AXITINIB
     Dosage: 3 MG, 2X/DAY
     Route: 048
     Dates: start: 20221026, end: 20221102
  3. KEYTRUDA [Suspect]
     Active Substance: PEMBROLIZUMAB
     Indication: Metastatic renal cell carcinoma
     Dosage: 200 MG, EVERY 3 WEEKS
     Route: 042
     Dates: start: 20220712, end: 20220712
  4. KEYTRUDA [Suspect]
     Active Substance: PEMBROLIZUMAB
     Dosage: 200 MG, EVERY 3 WEEKS
     Route: 042
     Dates: start: 20220803, end: 20220803
  5. KEYTRUDA [Suspect]
     Active Substance: PEMBROLIZUMAB
     Dosage: 200 MG, EVERY 3 WEEKS
     Route: 042
     Dates: start: 20220824, end: 20220824
  6. LANSOPRAZOLE [Concomitant]
     Active Substance: LANSOPRAZOLE
     Dosage: UNK
     Route: 048
     Dates: start: 20220608, end: 20220913
  7. DOMPERIDONE [Concomitant]
     Active Substance: DOMPERIDONE
     Dosage: UNK
     Route: 048
     Dates: start: 20220608, end: 20221102
  8. ZINC [Concomitant]
     Active Substance: ZINC
     Dosage: UNK
     Route: 048
     Dates: start: 20220617, end: 20221102
  9. MAGNESIUM OXIDE [Concomitant]
     Active Substance: MAGNESIUM OXIDE
     Dosage: UNK
     Route: 048
     Dates: start: 20220617, end: 20221121
  10. LAFUTIDINE [Concomitant]
     Active Substance: LAFUTIDINE
     Dosage: UNK
     Route: 048
     Dates: start: 20220914, end: 20221102

REACTIONS (6)
  - Tubulointerstitial nephritis [Fatal]
  - Interstitial lung disease [Fatal]
  - Pneumonia [Unknown]
  - Pneumocystis jirovecii pneumonia [Unknown]
  - Movement disorder [Unknown]
  - Cytomegalovirus test positive [Unknown]

NARRATIVE: CASE EVENT DATE: 20220824
